FAERS Safety Report 14014590 (Version 4)
Quarter: 2020Q1

REPORT INFORMATION
  Report Type: Spontaneous
  Country: DE (occurrence: DE)
  Receive Date: 20170927
  Receipt Date: 20200115
  Transmission Date: 20200409
  Serious: Yes (Hospitalization)
  Sender: FDA-Public Use
  Company Number: DE-BIOGEN-2017BI00464417

PATIENT
  Sex: Female
  Weight: 60 kg

DRUGS (2)
  1. TECFIDERA [Suspect]
     Active Substance: DIMETHYL FUMARATE
     Indication: RELAPSING-REMITTING MULTIPLE SCLEROSIS
     Dosage: MAINTENANCE DOSE
     Route: 048
     Dates: start: 20150730, end: 201901
  2. TECFIDERA [Suspect]
     Active Substance: DIMETHYL FUMARATE
     Dosage: MAINTENANCE DOSE
     Route: 048
     Dates: start: 201903

REACTIONS (3)
  - Non-small cell lung cancer stage II [Recovered/Resolved]
  - Non-small cell lung cancer stage I [Recovered/Resolved with Sequelae]
  - Squamous cell carcinoma of the vulva [Recovered/Resolved]

NARRATIVE: CASE EVENT DATE: 2016
